FAERS Safety Report 4641658-1 (Version None)
Quarter: 2005Q2

REPORT INFORMATION
  Report Type: 
  Country: None (occurrence: None)
  Receive Date: 20050420
  Receipt Date: 20050409
  Transmission Date: 20051028
  Serious: Yes (Death, Life-Threatening, Hospitalization)
  Sender: FDA-Public Use
  Company Number: 05P-056-0295485-00

PATIENT
  Age: 48 Year
  Sex: Male
  Weight: 69 kg

DRUGS (6)
  1. NORVIR [Suspect]
     Indication: HIV INFECTION
     Dosage: 200 MG, PER ORAL
     Route: 048
     Dates: start: 20040503, end: 20041213
  2. AMOXICILLIN AND CLAVULANATE POTASSIUM [Suspect]
     Indication: PYREXIA
     Dosage: PER ORAL
     Route: 048
     Dates: start: 20041208, end: 20041213
  3. TENOFOVIR [Suspect]
     Indication: HIV INFECTION
     Dosage: 300 MG, 1 IN 1 D, PER ORAL
     Route: 048
     Dates: start: 20040503
  4. FOSAMPRENAVIR [Suspect]
     Indication: HIV INFECTION
     Dosage: 700 MG, 2 IN 1 D, PER ORAL; 300 MG, 1 IN 1 D, ORAL; 200 MG, 1 IN 1 D, ORAL
     Route: 048
     Dates: start: 20041001, end: 20041213
  5. EMTRICITABINE [Suspect]
     Indication: HIV INFECTION
     Dosage: 200 MG DAILY, PER ORAL
     Route: 048
     Dates: start: 20040503
  6. EMTRICITABINE [Suspect]
     Indication: HIV INFECTION
     Dosage: 200 MG DAILY, PER ORAL
     Route: 048
     Dates: start: 20040503

REACTIONS (6)
  - CYTOLYTIC HEPATITIS [None]
  - HEPATIC FAILURE [None]
  - HEPATITIS CHOLESTATIC [None]
  - HYPOXIA [None]
  - MULTI-ORGAN FAILURE [None]
  - PYREXIA [None]
